FAERS Safety Report 4583027-9 (Version None)
Quarter: 2005Q1

REPORT INFORMATION
  Report Type: 
  Country: None (occurrence: None)
  Receive Date: 20050125
  Receipt Date: 20041028
  Transmission Date: 20050727
  Serious: No
  Sender: FDA-Public Use
  Company Number: USA040979446

PATIENT
  Age: 66 Year
  Sex: Female
  Weight: 69 kg

DRUGS (4)
  1. FORTEO [Suspect]
     Indication: OSTEOPOROSIS
     Dates: start: 20040901, end: 20040925
  2. CALCIUM /01483701/ [Concomitant]
  3. VITAMIN D [Concomitant]
  4. CALCITRIOL [Concomitant]

REACTIONS (7)
  - COLD SWEAT [None]
  - DYSGEUSIA [None]
  - HOT FLUSH [None]
  - HYPERHIDROSIS [None]
  - INSOMNIA [None]
  - NAUSEA [None]
  - VOMITING [None]
